FAERS Safety Report 12466264 (Version 2)
Quarter: 2016Q4

REPORT INFORMATION
  Report Type: Spontaneous
  Country: GB (occurrence: GB)
  Receive Date: 20160614
  Receipt Date: 20161221
  Transmission Date: 20170207
  Serious: Yes (Life-Threatening)
  Sender: FDA-Public Use
  Company Number: PHHY2016GB079063

PATIENT
  Age: 48 Year
  Weight: 118 kg

DRUGS (3)
  1. RAMIPRIL. [Concomitant]
     Active Substance: RAMIPRIL
     Indication: PRODUCT USED FOR UNKNOWN INDICATION
     Route: 065
  2. ADALIMUMAB [Suspect]
     Active Substance: ADALIMUMAB
     Indication: PSORIASIS
     Dosage: 40 MG, BIW
     Route: 058
     Dates: start: 2011, end: 20160520
  3. METHOTREXATE. [Suspect]
     Active Substance: METHOTREXATE
     Indication: PSORIASIS
     Dosage: 7.5 MG, UNK
     Route: 048
     Dates: start: 20150202, end: 20160520

REACTIONS (2)
  - Nasopharyngeal cancer [Not Recovered/Not Resolved]
  - VIth nerve paralysis [Unknown]

NARRATIVE: CASE EVENT DATE: 20160518
